FAERS Safety Report 9662771 (Version 2)
Quarter: 2013Q4

REPORT INFORMATION
  Report Type: Spontaneous
  Country: US (occurrence: US)
  Receive Date: 20131031
  Receipt Date: 20131031
  Transmission Date: 20140711
  Serious: Yes (Hospitalization)
  Sender: FDA-Public Use
  Company Number: US-NAPPMUNDI-USA-2011-0068712

PATIENT
  Age: 39 Year
  Sex: Male

DRUGS (1)
  1. OXYCONTIN (NDA 22-272) [Suspect]
     Indication: PAIN
     Dosage: 120 MG, BID
     Route: 048
     Dates: start: 201008

REACTIONS (13)
  - Pain [Unknown]
  - Hypokinesia [Unknown]
  - Musculoskeletal stiffness [Unknown]
  - Urinary retention [Unknown]
  - Impaired work ability [Unknown]
  - General physical health deterioration [Unknown]
  - Gait disturbance [Unknown]
  - Constipation [Unknown]
  - Drug ineffective [Unknown]
  - Drug effect delayed [Unknown]
  - Fluid retention [Unknown]
  - Inadequate analgesia [Unknown]
  - Drug withdrawal syndrome [Unknown]
